FAERS Safety Report 17715780 (Version 2)
Quarter: 2020Q2

REPORT INFORMATION
  Report Type: Spontaneous
  Country: RU (occurrence: RU)
  Receive Date: 20200427
  Receipt Date: 20200512
  Transmission Date: 20200714
  Serious: Yes (Death, Life-Threatening, Hospitalization, Other)
  Sender: FDA-Public Use
  Company Number: RU-BAXTER-2020BAX008469

PATIENT
  Age: 13 Year
  Sex: Female

DRUGS (14)
  1. VINCRISTINE [Suspect]
     Active Substance: VINCRISTINE
     Indication: EWING^S SARCOMA
     Dosage: 4 CYCLES; VIDE
     Route: 065
  2. DOXORUBICIN [Suspect]
     Active Substance: DOXORUBICIN
     Indication: EWING^S SARCOMA
     Dosage: 4 CYCLES; VIDE
     Route: 065
  3. ETOPOSIDE. [Suspect]
     Active Substance: ETOPOSIDE
     Indication: EWING^S SARCOMA
     Dosage: 4 CYCLES; VIDE
     Route: 065
  4. MEROPENEM. [Suspect]
     Active Substance: MEROPENEM
     Dosage: REINITATION
     Route: 065
  5. FLUCONAZOLE. [Suspect]
     Active Substance: FLUCONAZOLE
     Route: 048
  6. AMIKACIN. [Suspect]
     Active Substance: AMIKACIN
     Dosage: REINITATION
     Route: 065
  7. FLUCONAZOLE. [Suspect]
     Active Substance: FLUCONAZOLE
     Dosage: REINITIATION
     Route: 042
  8. FLUCONAZOLE. [Suspect]
     Active Substance: FLUCONAZOLE
     Dosage: REINITIATION
     Route: 048
  9. VANCOMYCIN [Suspect]
     Active Substance: VANCOMYCIN
     Indication: CANDIDA INFECTION
     Dosage: REINITATION
     Route: 065
  10. HOLOKSAN 2 G (IFOSFAMIDE) [Suspect]
     Active Substance: IFOSFAMIDE
     Indication: EWING^S SARCOMA
     Dosage: 4 CYCLES; VIDE
     Route: 065
  11. FLUCONAZOLE. [Suspect]
     Active Substance: FLUCONAZOLE
     Indication: CANDIDA INFECTION
     Route: 042
  12. AMIKACIN. [Suspect]
     Active Substance: AMIKACIN
     Indication: CANDIDA INFECTION
     Dosage: REINITATION
     Route: 065
  13. VANCOMYCIN [Suspect]
     Active Substance: VANCOMYCIN
     Dosage: REINITATION
     Route: 065
  14. MEROPENEM. [Suspect]
     Active Substance: MEROPENEM
     Indication: CANDIDA INFECTION
     Dosage: REINITATION
     Route: 065

REACTIONS (17)
  - Bone marrow failure [Recovered/Resolved]
  - Neutropenic colitis [Recovered/Resolved]
  - Agranulocytosis [Unknown]
  - Multiple organ dysfunction syndrome [Fatal]
  - Infection [Fatal]
  - Stomatitis [Unknown]
  - Systemic candida [Fatal]
  - Oesophageal candidiasis [Recovered/Resolved]
  - Enterococcal infection [Not Recovered/Not Resolved]
  - Cystitis [Unknown]
  - Drug resistance [Unknown]
  - Complex regional pain syndrome [Recovered/Resolved]
  - Vulvovaginitis [Not Recovered/Not Resolved]
  - Febrile neutropenia [Unknown]
  - Dermatitis [Unknown]
  - Candida infection [Fatal]
  - Aplasia [Unknown]
